FAERS Safety Report 4270261-0 (Version None)
Quarter: 2004Q1

REPORT INFORMATION
  Report Type: 
  Country: None (occurrence: None)
  Receive Date: 20040113
  Receipt Date: 20040113
  Transmission Date: 20041129
  Serious: Yes (Life-Threatening)
  Sender: FDA-Public Use
  Company Number: None

PATIENT
  Age: 52 Year
  Sex: Male

DRUGS (1)
  1. AMPHOTERICIN LIPID (ABLECET) [Suspect]
     Indication: FUNGAEMIA
     Dosage: 125 MG IVPB QD
     Route: 040
     Dates: start: 20031002, end: 20031011

REACTIONS (1)
  - PANCYTOPENIA [None]
